FAERS Safety Report 9802948 (Version 1)
Quarter: 2014Q1

REPORT INFORMATION
  Report Type: Spontaneous
  Country: GB (occurrence: None)
  Receive Date: 20140102
  Receipt Date: 20140102
  Transmission Date: 20141002
  Serious: Yes (Hospitalization)
  Sender: FDA-Public Use
  Company Number: AUR-APL-2013-10843

PATIENT
  Age: 39 Year
  Sex: Female
  Weight: 65 kg

DRUGS (2)
  1. CITALOPRAM (CITALOPRAM) [Suspect]
     Indication: DEPRESSION
     Dosage: 40 MG 1 IN 1 D
     Route: 048
     Dates: start: 201211
  2. INFLIXIMAB (INFLIXIMAB) [Suspect]
     Indication: PSORIASIS
     Dosage: 5 MG/KG, 1 IN 8 WK
     Route: 042
     Dates: start: 201104

REACTIONS (6)
  - Vomiting [None]
  - Chills [None]
  - Urosepsis [None]
  - Abdominal distension [None]
  - Splenic rupture [None]
  - Peritonitis [None]
